FAERS Safety Report 8224807-8 (Version None)
Quarter: 2012Q1

REPORT INFORMATION
  Report Type: 
  Country: None (occurrence: None)
  Receive Date: 20120321
  Receipt Date: 20120315
  Transmission Date: 20120608
  Serious: Yes (Hospitalization)
  Sender: FDA-Public Use
  Company Number: DE-ROCHE-1019207

PATIENT
  Age: 81 Year
  Sex: Male
  Weight: 90 kg

DRUGS (10)
  1. HEPARIN [Concomitant]
     Dates: start: 20111114, end: 20111206
  2. CLORAZEPATE DIPOTASSIUM [Concomitant]
     Dates: start: 20111118, end: 20111118
  3. AVASTIN [Suspect]
     Indication: METASTATIC MALIGNANT MELANOMA
     Dosage: LAST DOSE PRIOR TO SAE: 22/NOV/2011
     Route: 042
     Dates: start: 20111122, end: 20111205
  4. OXALIPLATIN [Suspect]
     Indication: METASTATIC MALIGNANT MELANOMA
     Dosage: LAST DOSE PRIOR TO SAE: 22/NOV/2011
     Route: 042
     Dates: start: 20111122, end: 20111205
  5. FLUOROURACIL [Suspect]
     Indication: METASTATIC MALIGNANT MELANOMA
     Dosage: LAST DOSE PRIOR TO SAE: 23/NOV/2011
     Route: 042
     Dates: start: 20111122, end: 20111205
  6. LEUCOVORIN CALCIUM [Suspect]
     Indication: METASTATIC MALIGNANT MELANOMA
     Dosage: LAST DOSE PRIOR TO SAE: 23/NOV/2011
     Route: 042
     Dates: start: 20111122, end: 20111205
  7. CLORAZEPATE DIPOTASSIUM [Concomitant]
     Dates: start: 20111117, end: 20111117
  8. ASPIRIN [Concomitant]
  9. RAMIPRIL [Concomitant]
  10. TAMSULOSIN HCL [Concomitant]

REACTIONS (1)
  - GENERAL PHYSICAL HEALTH DETERIORATION [None]
